FAERS Safety Report 6595274-5 (Version None)
Quarter: 2010Q1

REPORT INFORMATION
  Report Type: 
  Country: None (occurrence: None)
  Receive Date: 20100212
  Receipt Date: 20100128
  Transmission Date: 20100710
  Serious: Yes (Hospitalization)
  Sender: FDA-Public Use
  Company Number: 2010PL000009

PATIENT
  Age: 51 Year
  Sex: Female

DRUGS (3)
  1. LOTRONEX [Suspect]
     Indication: IRRITABLE BOWEL SYNDROME
     Dosage: 0.5 MG; BID; PO
     Route: 048
     Dates: start: 20090409, end: 20100115
  2. CYMBALTA [Concomitant]
  3. CELEBREXA [Concomitant]

REACTIONS (4)
  - CARDIAC FAILURE CONGESTIVE [None]
  - HEPATITIS [None]
  - MONONUCLEOSIS SYNDROME [None]
  - PULMONARY EMBOLISM [None]
